FAERS Safety Report 23604206 (Version 16)
Quarter: 2025Q2

REPORT INFORMATION
  Report Type: Report from Study
  Country: US (occurrence: US)
  Receive Date: 20240307
  Receipt Date: 20250501
  Transmission Date: 20250717
  Serious: Yes (Hospitalization, Other)
  Sender: TAKEDA
  Company Number: US-TAKEDA-2024TUS021136

PATIENT
  Age: 32 Year
  Sex: Male
  Weight: 77 kg

DRUGS (9)
  1. ADVATE [Suspect]
     Active Substance: ANTIHEMOPHILIC FACTOR, HUMAN RECOMBINANT
     Indication: Haemorrhage
  2. ADVATE [Suspect]
     Active Substance: ANTIHEMOPHILIC FACTOR, HUMAN RECOMBINANT
  3. ADVATE [Suspect]
     Active Substance: ANTIHEMOPHILIC FACTOR, HUMAN RECOMBINANT
  4. ADVATE [Suspect]
     Active Substance: ANTIHEMOPHILIC FACTOR, HUMAN RECOMBINANT
  5. ADVATE [Suspect]
     Active Substance: ANTIHEMOPHILIC FACTOR, HUMAN RECOMBINANT
  6. ADVATE [Suspect]
     Active Substance: ANTIHEMOPHILIC FACTOR, HUMAN RECOMBINANT
  7. ADVATE [Suspect]
     Active Substance: ANTIHEMOPHILIC FACTOR, HUMAN RECOMBINANT
  8. ADVATE [Suspect]
     Active Substance: ANTIHEMOPHILIC FACTOR, HUMAN RECOMBINANT
  9. HEMLIBRA [Concomitant]
     Active Substance: EMICIZUMAB-KXWH

REACTIONS (25)
  - Haemorrhage [Unknown]
  - Haemarthrosis [Not Recovered/Not Resolved]
  - Genital haemorrhage [Unknown]
  - Muscle haemorrhage [Recovering/Resolving]
  - Arterial rupture [Unknown]
  - Contusion [Unknown]
  - Vein rupture [Unknown]
  - Back pain [Unknown]
  - Arthralgia [Unknown]
  - Haematoma [Unknown]
  - Joint injury [Unknown]
  - Anxiety [Unknown]
  - Limb discomfort [Unknown]
  - Road traffic accident [Unknown]
  - Head injury [Unknown]
  - Mouth injury [Unknown]
  - Device leakage [Unknown]
  - Incorrect dose administered [Unknown]
  - Liquid product physical issue [Unknown]
  - Product solubility abnormal [Unknown]
  - Fall [Unknown]
  - Accident [Unknown]
  - Product use issue [Unknown]
  - Haemophilia [Unknown]
  - Limb injury [Unknown]

NARRATIVE: CASE EVENT DATE: 20240305
